FAERS Safety Report 5015078-4 (Version None)
Quarter: 2006Q2

REPORT INFORMATION
  Report Type: 
  Country: None (occurrence: None)
  Receive Date: 20060530
  Receipt Date: 20060516
  Transmission Date: 20061013
  Serious: Yes (Hospitalization)
  Sender: FDA-Public Use
  Company Number: DEU-2006-0002213

PATIENT
  Age: 59 Year
  Sex: Male
  Weight: 105 kg

DRUGS (9)
  1. OXYCODON 10MG/ NALOXON 5MG [Suspect]
     Indication: BACK PAIN
     Dosage: SEE IMAGE
     Route: 048
     Dates: start: 20060313, end: 20060321
  2. OXYCODON 10MG/ NALOXON 5MG [Suspect]
     Indication: BACK PAIN
     Dosage: SEE IMAGE
     Route: 048
     Dates: start: 20060322, end: 20060501
  3. LEVOTHYROXINE SODIUM [Concomitant]
  4. NITRENDIPINE [Concomitant]
  5. ANTIHYPERTENSIVES [Concomitant]
  6. RAMIPRIL [Concomitant]
  7. SIMVASTATIN [Concomitant]
  8. AMITRIPTYLINE HCL [Concomitant]
  9. MCP                     (METOCLOPRAMIDE HYDROCHLORIDE) [Concomitant]

REACTIONS (1)
  - HYPERTENSIVE CRISIS [None]
